FAERS Safety Report 4312882-2 (Version None)
Quarter: 2004Q1

REPORT INFORMATION
  Report Type: 
  Country: None (occurrence: None)
  Receive Date: 20040304
  Receipt Date: 20040301
  Transmission Date: 20041129
  Serious: Yes (Other)
  Sender: FDA-Public Use
  Company Number: STA-AE-04-MTX-083

PATIENT
  Age: 60 Year
  Sex: Female

DRUGS (4)
  1. RHEUMATREX [Suspect]
     Indication: RHEUMATOID ARTHRITIS
     Dosage: 6 MG 1X PER 1 WK; ORAL
     Route: 048
     Dates: start: 20040210, end: 20040218
  2. PREDONINE [Concomitant]
  3. ANALGESIC LIQ [Concomitant]
  4. UNSPECIFIED ANTI-INFLAMMATORY AGENT [Concomitant]

REACTIONS (3)
  - BONE MARROW DEPRESSION [None]
  - DISSEMINATED INTRAVASCULAR COAGULATION [None]
  - SEPSIS [None]
